FAERS Safety Report 8349232-0 (Version None)
Quarter: 2012Q2

REPORT INFORMATION
  Report Type: 
  Country: None (occurrence: None)
  Receive Date: 20120510
  Receipt Date: 20120502
  Transmission Date: 20120825
  Serious: Yes (Other)
  Sender: FDA-Public Use
  Company Number: PHHO2006US11603

PATIENT
  Sex: Female

DRUGS (5)
  1. MULTI-VITAMINS [Concomitant]
  2. NAPROXEN (ALEVE) [Suspect]
  3. GLEEVEC [Suspect]
     Indication: CHRONIC MYELOID LEUKAEMIA
     Dosage: 300 MG, QD
     Route: 048
     Dates: start: 20001003
  4. GLUCOSAMINE [Concomitant]
  5. CALCIUM [Concomitant]

REACTIONS (3)
  - RASH [None]
  - POLYMORPHIC LIGHT ERUPTION [None]
  - BLISTER [None]
